FAERS Safety Report 20577679 (Version 1)
Quarter: 2022Q1

REPORT INFORMATION
  Report Type: Spontaneous
  Country: US (occurrence: None)
  Receive Date: 20220310
  Receipt Date: 20220310
  Transmission Date: 20220423
  Serious: No
  Sender: FDA-Public Use
  Company Number: None

PATIENT
  Age: 56 Year
  Sex: Male
  Weight: 130.63 kg

DRUGS (1)
  1. METFORMIN HYDROCHLORIDE [Suspect]
     Active Substance: METFORMIN HYDROCHLORIDE
     Indication: Diabetes mellitus
     Dates: start: 20220222, end: 20220302

REACTIONS (7)
  - Rash [None]
  - Burning sensation [None]
  - Abdominal pain [None]
  - Tremor [None]
  - Dizziness [None]
  - Dizziness [None]
  - Respiratory depression [None]

NARRATIVE: CASE EVENT DATE: 20220228
